FAERS Safety Report 4476804-6 (Version None)
Quarter: 2004Q4

REPORT INFORMATION
  Report Type: 
  Country: None (occurrence: None)
  Receive Date: 20041012
  Receipt Date: 20041004
  Transmission Date: 20050328
  Serious: Yes (Death, Hospitalization)
  Sender: FDA-Public Use
  Company Number: 2004UW19172

PATIENT
  Age: 72 Year
  Sex: Female
  Weight: 73.4827 kg

DRUGS (10)
  1. IRESSA [Suspect]
     Indication: PANCREATIC CARCINOMA
     Dosage: 250 MG DAILY PO
     Route: 048
     Dates: start: 20040723, end: 20040910
  2. FLUOROURACIL [Suspect]
     Indication: PANCREATIC CARCINOMA
     Dosage: 340 MG DAILY MON-FRI
     Dates: start: 20040601, end: 20040601
  3. GEMZAR [Suspect]
     Indication: PANCREATIC CARCINOMA
     Dosage: 1000 MG/M2 WEEKLY
     Dates: start: 20040723, end: 20040827
  4. SYNTHROID [Concomitant]
  5. MAXZIDE [Concomitant]
  6. PROTONIX [Concomitant]
  7. PERCOCET [Concomitant]
  8. CENTRUM [Concomitant]
  9. XANAX [Concomitant]
  10. AMBIEN [Concomitant]

REACTIONS (10)
  - BLOOD CALCIUM DECREASED [None]
  - BLOOD SODIUM DECREASED [None]
  - HEPATIC FAILURE [None]
  - HEPATOTOXICITY [None]
  - MENTAL STATUS CHANGES [None]
  - OEDEMA [None]
  - PAIN IN EXTREMITY [None]
  - SKIN ULCER [None]
  - URINARY TRACT INFECTION [None]
  - VENOOCCLUSIVE LIVER DISEASE [None]
